FAERS Safety Report 7699868-5 (Version None)
Quarter: 2011Q3

REPORT INFORMATION
  Report Type: 
  Country: None (occurrence: None)
  Receive Date: 20110822
  Receipt Date: 20110815
  Transmission Date: 20111222
  Serious: Yes (Hospitalization)
  Sender: FDA-Public Use
  Company Number: GB-AMGEN-GBRSP2011042078

PATIENT
  Age: 43 Year
  Sex: Female

DRUGS (3)
  1. ENBREL [Suspect]
     Indication: PRODUCT USED FOR UNKNOWN INDICATION
     Dosage: 50 MG, WEEKLY
     Route: 058
  2. DAPSONE [Concomitant]
     Dosage: UNK
  3. COLCHICINE [Concomitant]
     Dosage: UNK

REACTIONS (7)
  - COUGH [None]
  - NAUSEA [None]
  - CHEST PAIN [None]
  - AGITATION [None]
  - LOWER RESPIRATORY TRACT INFECTION [None]
  - TREMOR [None]
  - DYSPNOEA [None]
